FAERS Safety Report 14447007 (Version 1)
Quarter: 2018Q1

REPORT INFORMATION
  Report Type: Spontaneous
  Country: IT (occurrence: IT)
  Receive Date: 20180126
  Receipt Date: 20180126
  Transmission Date: 20180509
  Serious: Yes (Other)
  Sender: FDA-Public Use
  Company Number: IL-TEVA-2017-IT-838556

PATIENT
  Age: 70 Year
  Sex: Male

DRUGS (1)
  1. CARBOPLATINO TEVA 10 MG/ML [Suspect]
     Active Substance: CARBOPLATIN
     Indication: BLADDER CANCER
     Route: 042
     Dates: start: 20171102, end: 20171102

REACTIONS (2)
  - Retching [Recovered/Resolved]
  - Erythema [Recovered/Resolved]

NARRATIVE: CASE EVENT DATE: 20171102
